FAERS Safety Report 10058118 (Version 1)
Quarter: 2014Q2

REPORT INFORMATION
  Report Type: Spontaneous
  Country: US (occurrence: US)
  Receive Date: 20140404
  Receipt Date: 20140404
  Transmission Date: 20141212
  Serious: No
  Sender: FDA-Public Use
  Company Number: US-PFIZER INC-2014094330

PATIENT
  Age: 65 Year
  Sex: Female
  Weight: 63.49 kg

DRUGS (2)
  1. XELJANZ [Suspect]
     Indication: RHEUMATOID ARTHRITIS
     Dosage: 5 MG, DAILY
     Route: 048
     Dates: start: 201403, end: 201403
  2. XELJANZ [Suspect]
     Dosage: UNK
     Route: 048
     Dates: start: 201403, end: 201403

REACTIONS (2)
  - Swelling [Recovered/Resolved]
  - Drug hypersensitivity [Unknown]
